FAERS Safety Report 6547524-9 (Version None)
Quarter: 2010Q1

REPORT INFORMATION
  Report Type: 
  Country: None (occurrence: None)
  Receive Date: 20100122
  Receipt Date: 20100113
  Transmission Date: 20100710
  Serious: Yes (Death)
  Sender: FDA-Public Use
  Company Number: DK-JNJFOC-20100104738

PATIENT
  Sex: Male

DRUGS (5)
  1. IBUPROFEN [Suspect]
     Indication: OSTEOARTHRITIS
  2. IBUPROFEN [Suspect]
  3. BENDROFLUMETHIAZIDE W/POTASSIUM CHLORIDE [Concomitant]
     Indication: HYPERTENSION
  4. ACETAMINOPHEN [Concomitant]
  5. APOZEPAM [Concomitant]

REACTIONS (1)
  - DEATH [None]
